FAERS Safety Report 4662216-9 (Version None)
Quarter: 2005Q2

REPORT INFORMATION
  Report Type: 
  Country: None (occurrence: None)
  Receive Date: 20050516
  Receipt Date: 20050502
  Transmission Date: 20051028
  Serious: Yes (Other)
  Sender: FDA-Public Use
  Company Number: US-AMGEN-US131562

PATIENT
  Age: 83 Year
  Sex: Male

DRUGS (6)
  1. PROCRIT [Suspect]
     Indication: RENAL FAILURE CHRONIC
     Route: 058
     Dates: start: 20040823, end: 20050323
  2. METOPROLOL TARTRATE [Concomitant]
  3. PREDNISONE [Concomitant]
  4. LASIX [Concomitant]
  5. POTASSIUM CHLORIDE [Concomitant]
  6. NEXIUM [Concomitant]

REACTIONS (1)
  - APLASIA PURE RED CELL [None]
